FAERS Safety Report 4909433-8 (Version None)
Quarter: 2006Q1

REPORT INFORMATION
  Report Type: 
  Country: None (occurrence: None)
  Receive Date: 20060209
  Receipt Date: 20060209
  Transmission Date: 20060701
  Serious: No
  Sender: FDA-Public Use
  Company Number: None

PATIENT
  Sex: Female
  Weight: 53.5244 kg

DRUGS (1)
  1. OFLOXACIN [Suspect]
     Indication: RESPIRATORY TRACT INFECTION
     Dosage: 200 MG 2 X DAILY PO
     Route: 048
     Dates: start: 20050117, end: 20050127

REACTIONS (8)
  - ABNORMAL DREAMS [None]
  - ARTHRALGIA [None]
  - DEPRESSION [None]
  - DIFFICULTY IN WALKING [None]
  - DRUG INEFFECTIVE [None]
  - HEADACHE [None]
  - INSOMNIA [None]
  - MUSCULAR WEAKNESS [None]
